FAERS Safety Report 9322251 (Version 1)
Quarter: 2013Q2

REPORT INFORMATION
  Report Type: Spontaneous
  Country: CH (occurrence: None)
  Receive Date: 20130529
  Receipt Date: 20130529
  Transmission Date: 20140414
  Serious: Yes (Hospitalization)
  Sender: FDA-Public Use
  Company Number: FK201301731

PATIENT
  Age: 2 Year
  Sex: Female

DRUGS (9)
  1. METHOTREXATE (METHOTREXATE) [Suspect]
     Indication: B PRECURSOR TYPE ACUTE LEUKAEMIA
     Route: 042
  2. CHLORAL HYDRATE [Suspect]
     Indication: SEDATIVE THERAPY
     Dosage: BEFORE COURSE 1
  3. LEUCOVORIN CALCIUM (CALCIUM FOLINATE) [Concomitant]
  4. MERCAPTOPURINE (MERCAPTOPURINE) [Concomitant]
  5. ONDANSETRON (ONDANSETRON) [Concomitant]
  6. GLUCOSALINE SOLUTE (GLUCOSE) [Concomitant]
  7. SODIUM BICARBONATE (SODIUM BICARBONATE) [Concomitant]
  8. FUROSEMIDE (FUROSEMIDE) [Concomitant]
  9. CO-AMOXICILLIN (AUGMENTIN /00756801/) [Concomitant]

REACTIONS (2)
  - Drug interaction [None]
  - Mucosal inflammation [None]
